FAERS Safety Report 12306407 (Version 1)
Quarter: 2016Q2

REPORT INFORMATION
  Report Type: Spontaneous
  Country: PE (occurrence: PE)
  Receive Date: 20160426
  Receipt Date: 20160426
  Transmission Date: 20160815
  Serious: Yes (Hospitalization, Other)
  Sender: FDA-Public Use
  Company Number: PE-PFIZER INC-2016206273

PATIENT
  Age: 77 Year
  Sex: Female

DRUGS (1)
  1. XALATAN [Suspect]
     Active Substance: LATANOPROST
     Indication: GLAUCOMA
     Dosage: 1 GTT, DAILY IN EACH EYE
     Route: 047

REACTIONS (1)
  - Spinal fracture [Recovered/Resolved]

NARRATIVE: CASE EVENT DATE: 201601
